FAERS Safety Report 7454132-4 (Version None)
Quarter: 2011Q2

REPORT INFORMATION
  Report Type: 
  Country: None (occurrence: None)
  Receive Date: 20110503
  Receipt Date: 20110425
  Transmission Date: 20111010
  Serious: No
  Sender: FDA-Public Use
  Company Number: US-BIOGENIDEC-2010BI038315

PATIENT
  Age: 60 Year
  Sex: Female

DRUGS (2)
  1. TYSABRI [Suspect]
     Indication: MULTIPLE SCLEROSIS
     Route: 042
     Dates: start: 20081117, end: 20101104
  2. TYSABRI [Suspect]
     Route: 042
     Dates: start: 20110408

REACTIONS (5)
  - DIPLOPIA [None]
  - INTERVERTEBRAL DISC DISPLACEMENT [None]
  - MIGRAINE [None]
  - MULTIPLE SCLEROSIS [None]
  - INTERVERTEBRAL DISC PROTRUSION [None]
